FAERS Safety Report 10376894 (Version 2)
Quarter: 2014Q4

REPORT INFORMATION
  Report Type: Report from Study
  Country: DE (occurrence: DE)
  Receive Date: 20140811
  Receipt Date: 20141017
  Transmission Date: 20150528
  Serious: Yes (Hospitalization)
  Sender: FDA-Public Use
  Company Number: US-ASTRAZENECA-2014SE57161

PATIENT
  Age: 6 Month
  Sex: Female
  Weight: 6.7 kg

DRUGS (19)
  1. SYNAGIS [Suspect]
     Active Substance: PALIVIZUMAB
     Indication: ANTIVIRAL PROPHYLAXIS
     Dosage: 110 MG, 1ML: CHB 35307 TFX; 0.2ML: CHB 34190 TFX
     Route: 030
     Dates: start: 20140221, end: 20140221
  2. SYNAGIS [Suspect]
     Active Substance: PALIVIZUMAB
     Indication: ANTIVIRAL PROPHYLAXIS
     Route: 030
     Dates: start: 20140122, end: 20140122
  3. SINGULAIR [Concomitant]
     Active Substance: MONTELUKAST SODIUM
     Indication: PRODUCT USED FOR UNKNOWN INDICATION
     Dates: start: 20140122, end: 20140203
  4. SYNAGIS [Suspect]
     Active Substance: PALIVIZUMAB
     Indication: BRONCHITIS CHRONIC
     Route: 030
     Dates: start: 20140122, end: 20140122
  5. OLYNTH [Suspect]
     Active Substance: XYLOMETAZOLINE HYDROCHLORIDE
     Indication: PRODUCT USED FOR UNKNOWN INDICATION
     Route: 045
     Dates: start: 20140128, end: 20140203
  6. SALBUTAMOL [Concomitant]
     Active Substance: ALBUTEROL
     Indication: PRODUCT USED FOR UNKNOWN INDICATION
     Dosage: VARYING DOSES
     Route: 055
  7. SYNAGIS [Suspect]
     Active Substance: PALIVIZUMAB
     Indication: BRONCHITIS CHRONIC
     Route: 030
     Dates: start: 20131120, end: 20131120
  8. VITAMIN D [Suspect]
     Active Substance: CHOLECALCIFEROL
     Indication: PRODUCT USED FOR UNKNOWN INDICATION
     Route: 065
     Dates: start: 20130628, end: 20140203
  9. ESPUMISAN [Concomitant]
     Indication: PRODUCT USED FOR UNKNOWN INDICATION
     Dosage: GTT AS NEEDED, WITH MEALS
  10. SYNAGIS [Suspect]
     Active Substance: PALIVIZUMAB
     Indication: BRONCHITIS CHRONIC
     Route: 030
     Dates: start: 20131023, end: 20131023
  11. SYNAGIS [Suspect]
     Active Substance: PALIVIZUMAB
     Indication: ANTIVIRAL PROPHYLAXIS
     Route: 030
     Dates: start: 20131023, end: 20131023
  12. SYNAGIS [Suspect]
     Active Substance: PALIVIZUMAB
     Indication: BRONCHITIS CHRONIC
     Route: 030
     Dates: start: 20140321
  13. SYNAGIS [Suspect]
     Active Substance: PALIVIZUMAB
     Indication: ANTIVIRAL PROPHYLAXIS
     Route: 030
     Dates: start: 20140321
  14. CEFACLOR. [Suspect]
     Active Substance: CEFACLOR
     Indication: PRODUCT USED FOR UNKNOWN INDICATION
     Route: 048
     Dates: start: 20140203, end: 20140203
  15. SYNAGIS [Suspect]
     Active Substance: PALIVIZUMAB
     Indication: BRONCHITIS CHRONIC
     Route: 030
     Dates: start: 20131219, end: 20131219
  16. SYNAGIS [Suspect]
     Active Substance: PALIVIZUMAB
     Indication: ANTIVIRAL PROPHYLAXIS
     Route: 030
     Dates: start: 20131219, end: 20131219
  17. SYNAGIS [Suspect]
     Active Substance: PALIVIZUMAB
     Indication: BRONCHITIS CHRONIC
     Dosage: 110 MG, 1ML: CHB 35307 TFX; 0.2ML: CHB 34190 TFX
     Route: 030
     Dates: start: 20140221, end: 20140221
  18. SYNAGIS [Suspect]
     Active Substance: PALIVIZUMAB
     Indication: ANTIVIRAL PROPHYLAXIS
     Route: 030
     Dates: start: 20131120, end: 20131120
  19. FLUTIDE [Concomitant]
     Active Substance: FLUTICASONE PROPIONATE
     Indication: PRODUCT USED FOR UNKNOWN INDICATION
     Route: 055
     Dates: start: 20131128, end: 20140203

REACTIONS (7)
  - Respiratory syncytial virus bronchiolitis [Recovered/Resolved]
  - Cough [Unknown]
  - Bronchitis [Recovered/Resolved]
  - Vomiting [Unknown]
  - Hypophagia [Unknown]
  - Iron deficiency anaemia [Unknown]
  - Gastroenteritis [Unknown]

NARRATIVE: CASE EVENT DATE: 201401
